FAERS Safety Report 4616055-5 (Version None)
Quarter: 2005Q1

REPORT INFORMATION
  Report Type: 
  Country: None (occurrence: None)
  Receive Date: 20050318
  Receipt Date: 20050312
  Transmission Date: 20050727
  Serious: Yes (Other)
  Sender: FDA-Public Use
  Company Number: 167-20785-05030295

PATIENT
  Sex: Male

DRUGS (1)
  1. THALIDOMIDE PHARMION (THALIDOMIDE) (CAPSULES) [Suspect]
     Indication: MULTIPLE MYELOMA
     Dosage: ORAL
     Route: 048
     Dates: start: 20050301

REACTIONS (1)
  - NO ADVERSE EFFECT [None]
